FAERS Safety Report 9227379 (Version 5)
Quarter: 2013Q3

REPORT INFORMATION
  Report Type: Report from Study
  Country: AU (occurrence: AU)
  Receive Date: 20130412
  Receipt Date: 20130808
  Transmission Date: 20140515
  Serious: Yes (Hospitalization, Other)
  Sender: FDA-Public Use
  Company Number: PHHY2013AU034383

PATIENT
  Age: 24 Year
  Sex: Male

DRUGS (3)
  1. CLOZARIL [Suspect]
     Dosage: 800 MG, ( 200 MG IN MORNING AND 600 MG IN NIGHT)
     Route: 048
     Dates: start: 20100524, end: 20130728
  2. AMISULPRIDE [Concomitant]
     Dosage: 100 MG, BID
     Route: 048
  3. DIAZEPAM [Concomitant]
     Dosage: 5 MG, TID
     Route: 048

REACTIONS (3)
  - Schizophrenia [Unknown]
  - Anxiety [Recovering/Resolving]
  - Drug ineffective [Unknown]
